FAERS Safety Report 6122848-8 (Version None)
Quarter: 2009Q1

REPORT INFORMATION
  Report Type: 
  Country: None (occurrence: None)
  Receive Date: 20090318
  Receipt Date: 20090313
  Transmission Date: 20090719
  Serious: Yes (Other)
  Sender: FDA-Public Use
  Company Number: B0544466A

PATIENT
  Age: 27 Year
  Sex: Male
  Weight: 46 kg

DRUGS (6)
  1. ARRANON [Suspect]
     Dosage: 1500MGM2 PER DAY
     Route: 042
     Dates: start: 20081011, end: 20081015
  2. PREDONINE [Concomitant]
     Dates: start: 20081004, end: 20081216
  3. UNKNOWN DRUG [Concomitant]
     Indication: INFECTION PROPHYLAXIS
     Route: 048
     Dates: start: 20081004
  4. FLUCONAZOLE [Concomitant]
     Indication: GASTROINTESTINAL ULCER
     Dosage: 10MG PER DAY
     Route: 048
     Dates: start: 20081004
  5. PARIET [Concomitant]
     Dosage: 10MG PER DAY
     Route: 048
     Dates: start: 20081004
  6. SALOBEL [Concomitant]
     Route: 048
     Dates: start: 20081010, end: 20081118

REACTIONS (1)
  - LIVER DISORDER [None]
